FAERS Safety Report 9387513 (Version 1)
Quarter: 2013Q2

REPORT INFORMATION
  Report Type: Spontaneous
  Country: GB (occurrence: None)
  Receive Date: 20130627
  Receipt Date: 20130627
  Transmission Date: 20140414
  Serious: Yes (Hospitalization)
  Sender: FDA-Public Use
  Company Number: 2013036129

PATIENT
  Age: 9 Year
  Sex: Female

DRUGS (1)
  1. PRIVIGEN (IMMUNE GLOBULIN INTRAVENOUS (HUMAN) 10% LIQUID) [Suspect]
     Indication: SECONDARY IMMUNODEFICIENCY
     Dosage: INFUSED OVER 4 HRS
     Route: 041
     Dates: start: 20130408

REACTIONS (4)
  - Agitation [None]
  - Abnormal behaviour [None]
  - Pyrexia [None]
  - Headache [None]
